FAERS Safety Report 6277906-4 (Version None)
Quarter: 2009Q3

REPORT INFORMATION
  Report Type: 
  Country: None (occurrence: None)
  Receive Date: 20090722
  Receipt Date: 20090713
  Transmission Date: 20100115
  Serious: Yes (Other)
  Sender: FDA-Public Use
  Company Number: US-WYE-H10144709

PATIENT
  Sex: Female

DRUGS (1)
  1. ROBITUSSIN COUGH LONG ACTING [Suspect]
     Indication: EUPHORIC MOOD
     Dosage: UNKNOWN
     Route: 048

REACTIONS (2)
  - DRUG ABUSE [None]
  - MALAISE [None]
